FAERS Safety Report 5146983-6 (Version None)
Quarter: 2006Q4

REPORT INFORMATION
  Report Type: 
  Country: None (occurrence: None)
  Receive Date: 20061109
  Receipt Date: 20060928
  Transmission Date: 20070319
  Serious: Yes (Hospitalization, Other)
  Sender: FDA-Public Use
  Company Number: US-ELI_LILLY_AND_COMPANY-US200609007297

PATIENT
  Age: 69 Year
  Sex: Female

DRUGS (17)
  1. FLONASE [Concomitant]
     Indication: MULTIPLE ALLERGIES
     Dosage: 1 INHALATION IN EACH NOSTRIL
  2. SPIRIVA ^PFIZER^ [Concomitant]
     Dosage: 1 INHALATION
  3. ALBUTEROL [Concomitant]
     Dosage: UNK, 4/D
  4. FORTEO [Suspect]
     Indication: OSTEOPOROSIS
     Dosage: 25 UG, DAILY (1/D)
     Route: 058
     Dates: start: 20060708
  5. NEUROTON [Concomitant]
     Indication: PAIN
     Dosage: 400 MG, 3/D
     Route: 048
  6. NEXIUM [Concomitant]
     Indication: ULCER
     Dosage: 40 MG, 2/D
     Route: 048
  7. THEO-DUR [Concomitant]
     Indication: DYSPNOEA
     Dosage: 300 MG, 2/D
     Route: 048
  8. NOLVADEX [Concomitant]
     Indication: NEOPLASM MALIGNANT
     Dosage: 10 MG, 2/D
     Route: 048
  9. PREDNISONE TAB [Concomitant]
     Indication: DYSPNOEA
     Dosage: 10 MG, DAILY (1/D)
     Route: 048
  10. TIAZAC [Concomitant]
     Indication: HYPERTENSION
     Dosage: 180 MG, 2/D
     Route: 048
  11. FLONASE [Concomitant]
     Dosage: 16 MG, DAILY (1/D)
  12. SPIRIVA ^PFIZER^ [Concomitant]
     Dosage: 18 MG, DAILY (1/D)
  13. DARVOCET [Concomitant]
     Indication: PAIN
     Dosage: 100 MG, AS NEEDED
  14. ALBUTEROL [Concomitant]
     Dosage: 17 MG, AS NEEDED
  15. OXYGEN [Concomitant]
     Dosage: 3 LITER, UNK
     Route: 055
  16. PROPOXYPHENE HCL [Concomitant]
  17. FOSAMAX                                 /ITA/ [Concomitant]
     Indication: OSTEOPOROSIS

REACTIONS (12)
  - ANAEMIA POSTOPERATIVE [None]
  - ANXIETY [None]
  - BRONCHITIS [None]
  - CANDIDIASIS [None]
  - DEPRESSION [None]
  - FALL [None]
  - FEMUR FRACTURE [None]
  - HYPERGLYCAEMIA [None]
  - PHARMACEUTICAL PRODUCT COMPLAINT [None]
  - PNEUMONIA [None]
  - POLLAKIURIA [None]
  - PRESCRIBED OVERDOSE [None]
